FAERS Safety Report 6198863-5 (Version None)
Quarter: 2009Q2

REPORT INFORMATION
  Report Type: 
  Country: None (occurrence: None)
  Receive Date: 20090522
  Receipt Date: 20090514
  Transmission Date: 20091009
  Serious: Yes (Hospitalization)
  Sender: FDA-Public Use
  Company Number: US-BIOGENIDEC-2009BI013024

PATIENT
  Age: 53 Year
  Sex: Female
  Weight: 87 kg

DRUGS (8)
  1. AVONEX [Suspect]
     Indication: MULTIPLE SCLEROSIS
     Route: 030
     Dates: end: 20060101
  2. AVONEX [Suspect]
     Route: 030
     Dates: start: 20061001
  3. AVONEX [Suspect]
     Route: 030
     Dates: start: 20031201, end: 20040601
  4. BACLOFEN [Concomitant]
     Indication: MUSCLE SPASTICITY
     Route: 048
  5. ACYCLOVIR [Concomitant]
     Indication: DRUG USE FOR UNKNOWN INDICATION
     Route: 048
  6. ALBUTEROL SULFATE [Concomitant]
     Indication: DRUG USE FOR UNKNOWN INDICATION
     Route: 055
  7. QVAR 40 [Concomitant]
     Indication: DRUG USE FOR UNKNOWN INDICATION
     Route: 055
  8. ACETAMINOPHEN AND HYDROCODONE BITARTRATE [Concomitant]
     Indication: PAIN

REACTIONS (12)
  - ABASIA [None]
  - ARTHROPATHY [None]
  - BACTERIAL INFECTION [None]
  - DEPRESSION [None]
  - MERALGIA PARAESTHETICA [None]
  - MULTIPLE SCLEROSIS RELAPSE [None]
  - MUSCLE SPASMS [None]
  - NIGHT SWEATS [None]
  - PARAESTHESIA [None]
  - PLATELET COUNT DECREASED [None]
  - POOR QUALITY SLEEP [None]
  - STRESS [None]
